FAERS Safety Report 7255664-4 (Version None)
Quarter: 2011Q1

REPORT INFORMATION
  Report Type: 
  Country: None (occurrence: None)
  Receive Date: 20110129
  Receipt Date: 20100823
  Transmission Date: 20110831
  Serious: No
  Sender: FDA-Public Use
  Company Number: US-ABBOTT-10P-163-0666707-00

PATIENT
  Sex: Male
  Weight: 131.66 kg

DRUGS (4)
  1. ATENOLOL [Concomitant]
     Indication: HYPERTENSION
  2. BENICAR [Concomitant]
     Indication: HYPERTENSION
  3. TORSEMIDE [Concomitant]
     Indication: HYPERTENSION
  4. HUMIRA [Suspect]
     Indication: PSORIATIC ARTHROPATHY
     Route: 058
     Dates: start: 20100601, end: 20100801

REACTIONS (3)
  - NAUSEA [None]
  - ABDOMINAL DISTENSION [None]
  - VOMITING [None]
